FAERS Safety Report 24704406 (Version 1)
Quarter: 2024Q4

REPORT INFORMATION
  Report Type: Spontaneous
  Country: CN (occurrence: CN)
  Receive Date: 20241206
  Receipt Date: 20241206
  Transmission Date: 20250115
  Serious: Yes (Other)
  Sender: MELINTA THERAPEUTICS
  Company Number: CN-ASTRAZENECA-202411CHN007924CN

PATIENT

DRUGS (1)
  1. METOPROLOL SUCCINATE [Suspect]
     Active Substance: METOPROLOL SUCCINATE
     Indication: Heart rate normal
     Dosage: 47.5 MILLIGRAM, QD
     Route: 048
     Dates: start: 20241009, end: 20241022

REACTIONS (1)
  - Sinus arrest [Recovering/Resolving]
